FAERS Safety Report 6043127-3 (Version None)
Quarter: 2009Q1

REPORT INFORMATION
  Report Type: 
  Country: None (occurrence: None)
  Receive Date: 20090119
  Receipt Date: 20090113
  Transmission Date: 20090719
  Serious: Yes (Life-Threatening)
  Sender: FDA-Public Use
  Company Number: US-ROCHE-607631

PATIENT
  Age: 16 Year
  Sex: Female

DRUGS (3)
  1. VALIUM [Suspect]
     Indication: DRUG USE FOR UNKNOWN INDICATION
     Dosage: RECEIVED OVERDOSE ON 03 NOV 2008
     Route: 065
  2. CONCERTA [Suspect]
     Dosage: MISSED ONE DOSE ON 03 NOV 2008; DRUG REPORTED AS CONCERTA SUSTAINED RELEASE TABLETS
     Route: 048
     Dates: start: 20070101
  3. ANTIDEPRESSANT NOS [Concomitant]
     Indication: DEPRESSION
     Route: 048
     Dates: start: 20070101

REACTIONS (3)
  - INAPPROPRIATE SCHEDULE OF DRUG ADMINISTRATION [None]
  - OVERDOSE [None]
  - SUICIDE ATTEMPT [None]
